FAERS Safety Report 11011056 (Version 1)
Quarter: 2015Q2

REPORT INFORMATION
  Report Type: Report from Study
  Country: US (occurrence: US)
  Receive Date: 20150410
  Receipt Date: 20150410
  Transmission Date: 20150821
  Serious: No
  Sender: FDA-Public Use
  Company Number: PHEH2015US006042

PATIENT
  Sex: Female

DRUGS (3)
  1. TASIGNA [Suspect]
     Active Substance: NILOTINIB
     Indication: CHRONIC MYELOID LEUKAEMIA
     Route: 065
     Dates: start: 201502
  2. KETOFEN [Suspect]
     Active Substance: KETOPROFEN
     Indication: HISTAMINE ABNORMAL
     Route: 065
  3. LEVOTHYROXINE [Suspect]
     Active Substance: LEVOTHYROXINE
     Indication: HYPOTHYROIDISM
     Route: 065

REACTIONS (5)
  - Swelling face [Unknown]
  - Vomiting [Unknown]
  - Migraine [Unknown]
  - Diarrhoea [Unknown]
  - Chest pain [Unknown]
